FAERS Safety Report 6504822-2 (Version None)
Quarter: 2009Q4

REPORT INFORMATION
  Report Type: 
  Country: None (occurrence: None)
  Receive Date: 20091215
  Receipt Date: 20091106
  Transmission Date: 20100525
  Serious: Yes (Other)
  Sender: FDA-Public Use
  Company Number: AE-2009-290

PATIENT
  Sex: Male
  Weight: 83 kg

DRUGS (5)
  1. METFORMIN HYDROCHLORIDE [Suspect]
  2. TRAMADOL [Suspect]
  3. BENDROFLUAZIDE [Concomitant]
  4. LOSARTAN [Concomitant]
  5. SIMVASTATIN [Concomitant]

REACTIONS (4)
  - ASTHENIA [None]
  - DECREASED APPETITE [None]
  - DRUG INTERACTION [None]
  - NAUSEA [None]
